FAERS Safety Report 6458688-X (Version None)
Quarter: 2009Q4

REPORT INFORMATION
  Report Type: 
  Country: None (occurrence: None)
  Receive Date: 20091127
  Receipt Date: 20091118
  Transmission Date: 20100525
  Serious: Yes (Disabling)
  Sender: FDA-Public Use
  Company Number: GB-ROCHE-480574

PATIENT
  Age: 63 Year
  Sex: Female
  Weight: 71 kg

DRUGS (8)
  1. XENICAL [Suspect]
     Indication: OBESITY
     Route: 048
     Dates: start: 20061101, end: 20061120
  2. ATORVASTATIN [Concomitant]
     Dates: start: 20030409
  3. BECLOMETASONE [Concomitant]
     Dates: start: 19980716
  4. BECLOMETHASONE DIPROPIONATE [Concomitant]
     Dates: end: 20060901
  5. METFORMIN HCL [Concomitant]
     Dates: start: 20060222
  6. OMEPRAZOLE [Concomitant]
     Dates: start: 20000915
  7. ALBUTEROL [Concomitant]
     Dates: start: 19991223
  8. SALMETEROL XINAFOATE [Concomitant]
     Dates: start: 20060706

REACTIONS (1)
  - IIIRD NERVE PARESIS [None]
